FAERS Safety Report 15281506 (Version 1)
Quarter: 2018Q3

REPORT INFORMATION
  Report Type: Spontaneous
  Country: US (occurrence: US)
  Receive Date: 20180731
  Receipt Date: 20180731
  Transmission Date: 20181010
  Serious: Yes (Hospitalization, Disabling)
  Sender: FDA-Public Use
  Company Number: None

PATIENT
  Age: 64 Year
  Sex: Female
  Weight: 58.51 kg

DRUGS (1)
  1. DOCETAXEL 120MG 250ML [Suspect]
     Active Substance: DOCETAXEL
     Indication: BREAST CANCER
     Dosage: ?          QUANTITY:J50 AL;?
     Route: 042
     Dates: start: 20170129, end: 20180131

REACTIONS (2)
  - Vision blurred [None]
  - Macular oedema [None]

NARRATIVE: CASE EVENT DATE: 20180110
